FAERS Safety Report 13512226 (Version 1)
Quarter: 2017Q2

REPORT INFORMATION
  Report Type: Spontaneous
  Country: US (occurrence: US)
  Receive Date: 20170504
  Receipt Date: 20170504
  Transmission Date: 20170830
  Serious: Yes (Other)
  Sender: FDA-Public Use
  Company Number: None

PATIENT
  Age: 31 Year
  Sex: Female
  Weight: 70.2 kg

DRUGS (13)
  1. SPIRIVA [Concomitant]
     Active Substance: TIOTROPIUM BROMIDE MONOHYDRATE
  2. NIACINIMIDE [Concomitant]
  3. B6 [Concomitant]
     Active Substance: PYRIDOXINE HYDROCHLORIDE
  4. SAPHRIS [Suspect]
     Active Substance: ASENAPINE MALEATE
     Indication: BIPOLAR I DISORDER
     Dosage: ?          QUANTITY:10 TABLET(S);?
     Route: 060
     Dates: start: 20170412, end: 20170503
  5. SINGULAIR [Concomitant]
     Active Substance: MONTELUKAST SODIUM
  6. PROBIOTICS [Concomitant]
     Active Substance: PROBIOTICS NOS
  7. SAM E [Concomitant]
  8. BUSPAR [Concomitant]
     Active Substance: BUSPIRONE HYDROCHLORIDE
  9. ALEVE [Concomitant]
     Active Substance: NAPROXEN SODIUM
  10. GINKGO [Concomitant]
     Active Substance: GINKGO
  11. ASMANEX [Concomitant]
     Active Substance: MOMETASONE FUROATE
  12. VYVANSE [Concomitant]
     Active Substance: LISDEXAMFETAMINE DIMESYLATE
  13. CHOLINE-INOSITOL [Concomitant]

REACTIONS (3)
  - Weight increased [None]
  - Agitation [None]
  - Vision blurred [None]

NARRATIVE: CASE EVENT DATE: 20170501
